FAERS Safety Report 8555198 (Version 3)
Quarter: 2013Q1

REPORT INFORMATION
  Report Type: Spontaneous
  Country: GB (occurrence: GB)
  Receive Date: 20120510
  Receipt Date: 20130109
  Transmission Date: 20140127
  Serious: Yes (Other)
  Sender: FDA-Public Use
  Company Number: GB-PFIZER INC-2012110693

PATIENT
  Sex: Male

DRUGS (3)
  1. EFEXOR XL [Suspect]
     Dosage: 100MG/150 MG, 1X/DAY
  2. EFEXOR XL [Suspect]
     Dosage: 225 MG, 1X (12 HR RELEASE) CAPSULE
  3. EFEXOR [Suspect]
     Dosage: 75 MG, 1X/DAY

REACTIONS (14)
  - Withdrawal syndrome [Unknown]
  - Convulsion [Unknown]
  - Aggression [Unknown]
  - Photophobia [Unknown]
  - Hallucination [Unknown]
  - Antisocial behaviour [Unknown]
  - Feeling abnormal [Unknown]
  - Feeling abnormal [Unknown]
  - Hyperacusis [Unknown]
  - Headache [Unknown]
  - White blood cell count abnormal [Unknown]
  - Stress [Unknown]
  - Platelet disorder [Unknown]
  - Flatulence [Unknown]
